FAERS Safety Report 4272656-8 (Version None)
Quarter: 2004Q1

REPORT INFORMATION
  Report Type: 
  Country: None (occurrence: None)
  Receive Date: 20040115
  Receipt Date: 20040115
  Transmission Date: 20041129
  Serious: Yes (Hospitalization)
  Sender: FDA-Public Use
  Company Number: None

PATIENT
  Sex: Male

DRUGS (1)
  1. IRINOTECAN [Suspect]
     Indication: RHABDOMYOSARCOMA
     Dosage: 40 MG X 5 DAYS IV
     Route: 042
     Dates: start: 20030616, end: 20030620

REACTIONS (2)
  - DEHYDRATION [None]
  - HYPOTENSION [None]
